FAERS Safety Report 6684519-9 (Version None)
Quarter: 2010Q2

REPORT INFORMATION
  Report Type: 
  Country: None (occurrence: None)
  Receive Date: 20100416
  Receipt Date: 20100325
  Transmission Date: 20101027
  Serious: Yes (Death, Hospitalization)
  Sender: FDA-Public Use
  Company Number: GB-MEDIMMUNE-MEDI-0009782

PATIENT
  Sex: Male
  Weight: 5.5 kg

DRUGS (6)
  1. SYNAGIS [Suspect]
     Dates: start: 20071026
  2. GAVISCON [Concomitant]
     Dosage: 1 ML X 8
     Dates: start: 20070413, end: 20080128
  3. FUROSEMIDE [Concomitant]
     Indication: CARDIAC FAILURE
     Dates: start: 20070413, end: 20080128
  4. ACETYLSALICYLIC ACID [Concomitant]
     Dates: start: 20070917, end: 20080128
  5. SPIRONOLACTONE [Concomitant]
     Indication: CARDIAC FAILURE
     Dates: start: 20070418, end: 20080128
  6. UVESTEROL [Concomitant]
     Dates: start: 20070414, end: 20080128

REACTIONS (5)
  - ANOMALOUS PULMONARY VENOUS CONNECTION [None]
  - LUNG INFECTION [None]
  - MITRAL VALVE ATRESIA [None]
  - TRUNCUS ARTERIOSUS PERSISTENT [None]
  - VENTRICULAR HYPOPLASIA [None]
